FAERS Safety Report 23935561 (Version 1)
Quarter: 2024Q2

REPORT INFORMATION
  Report Type: Other
  Country: CN (occurrence: None)
  Receive Date: 20240604
  Receipt Date: 20240604
  Transmission Date: 20240716
  Serious: Yes (Other)
  Sender: FDA-Public Use
  Company Number: CN-ROCHE-3574106

PATIENT
  Age: 63 Year
  Sex: Male

DRUGS (14)
  1. OBINUTUZUMAB [Suspect]
     Active Substance: OBINUTUZUMAB
     Indication: High-grade B-cell lymphoma
     Route: 065
  2. RITUXIMAB [Suspect]
     Active Substance: RITUXIMAB
     Indication: Marginal zone lymphoma
     Dosage: 2 CYCLES
     Route: 065
  3. CYCLOPHOSPHAMIDE [Suspect]
     Active Substance: CYCLOPHOSPHAMIDE
     Indication: Marginal zone lymphoma
     Dosage: 2 CYCLES
     Route: 065
  4. DOXORUBICIN [Suspect]
     Active Substance: DOXORUBICIN
     Indication: Marginal zone lymphoma
     Dosage: 2 CYCLES
     Route: 065
  5. VINDESINE [Suspect]
     Active Substance: VINDESINE
     Indication: Marginal zone lymphoma
     Dosage: 2 CYCLES
     Route: 065
  6. PREDNISONE [Suspect]
     Active Substance: PREDNISONE
     Indication: Marginal zone lymphoma
     Dosage: 2 CYCLES
     Route: 065
  7. VINCRISTINE [Suspect]
     Active Substance: VINCRISTINE
     Indication: High-grade B-cell lymphoma
     Route: 065
  8. MITOXANTRONE HYDROCHLORIDE [Suspect]
     Active Substance: MITOXANTRONE HYDROCHLORIDE
     Indication: High-grade B-cell lymphoma
     Route: 065
  9. VENETOCLAX [Suspect]
     Active Substance: VENETOCLAX
     Indication: High-grade B-cell lymphoma
     Route: 065
  10. DEXAMETHASONE [Suspect]
     Active Substance: DEXAMETHASONE
     Indication: High-grade B-cell lymphoma
     Route: 065
  11. GEMCITABINE [Concomitant]
     Active Substance: GEMCITABINE
     Indication: High-grade B-cell lymphoma
  12. OXALIPLATIN [Concomitant]
     Active Substance: OXALIPLATIN
     Indication: High-grade B-cell lymphoma
  13. LENALIDOMIDE [Concomitant]
     Active Substance: LENALIDOMIDE
     Indication: High-grade B-cell lymphoma
  14. ZANUBRUTINIB [Concomitant]
     Active Substance: ZANUBRUTINIB
     Indication: High-grade B-cell lymphoma

REACTIONS (5)
  - Disease progression [Unknown]
  - High-grade B-cell lymphoma [Unknown]
  - Myelosuppression [Unknown]
  - Infection [Unknown]
  - Hepatic function abnormal [Unknown]

NARRATIVE: CASE EVENT DATE: 20220401
